FAERS Safety Report 8291442-5 (Version None)
Quarter: 2012Q2

REPORT INFORMATION
  Report Type: 
  Country: None (occurrence: None)
  Receive Date: 20120417
  Receipt Date: 20120410
  Transmission Date: 20120825
  Serious: Yes (Hospitalization)
  Sender: FDA-Public Use
  Company Number: US-BAYER-2012-035421

PATIENT
  Age: 26 Year
  Sex: Female
  Weight: 104.54 kg

DRUGS (4)
  1. ZOLOFT [Concomitant]
  2. SYNTHROID [Concomitant]
     Indication: HYPOTHYROIDISM
     Dosage: 25 ?G, QD
     Route: 048
  3. ATIVAN [Concomitant]
     Indication: ANXIETY
     Dosage: 1 MG, BID
     Route: 048
  4. YAZ [Suspect]

REACTIONS (1)
  - DEEP VEIN THROMBOSIS [None]
